FAERS Safety Report 18305940 (Version 1)
Quarter: 2020Q3

REPORT INFORMATION
  Report Type: Other
  Country: US (occurrence: US)
  Receive Date: 20200923
  Receipt Date: 20200923
  Transmission Date: 20201103
  Serious: Yes (Hospitalization)
  Sender: FDA-Public Use
  Company Number: US-STANDARD HOMEOPATHIC COMPANY-2091093

PATIENT
  Age: 83 Year
  Sex: Male

DRUGS (1)
  1. HYLANDS LEG CRAMPS [Suspect]
     Active Substance: HOMEOPATHICS
     Indication: MUSCLE SPASMS
     Route: 048
     Dates: start: 20200911, end: 20200911

REACTIONS (1)
  - Seizure [Unknown]

NARRATIVE: CASE EVENT DATE: 20200911
